FAERS Safety Report 5814517-6 (Version None)
Quarter: 2008Q3

REPORT INFORMATION
  Report Type: 
  Country: None (occurrence: None)
  Receive Date: 20080715
  Receipt Date: 20080630
  Transmission Date: 20090109
  Serious: Yes (Disabling)
  Sender: FDA-Public Use
  Company Number: 2008S1011507

PATIENT
  Age: 51 Year
  Sex: Male

DRUGS (3)
  1. ATENOLOL [Suspect]
     Indication: HYPERTENSION
  2. PROPRANOLOL [Suspect]
     Indication: MIGRAINE
  3. SILDENAFIL CITRATE [Suspect]

REACTIONS (7)
  - BLOOD CORTISOL DECREASED [None]
  - DIPLOPIA [None]
  - HORMONE LEVEL ABNORMAL [None]
  - HYPOPITUITARISM [None]
  - IIIRD NERVE PARALYSIS [None]
  - PITUITARY HAEMORRHAGE [None]
  - PITUITARY INFARCTION [None]
